FAERS Safety Report 21268877 (Version 4)
Quarter: 2022Q4

REPORT INFORMATION
  Report Type: Report from Study
  Country: US (occurrence: US)
  Receive Date: 20220830
  Receipt Date: 20221110
  Transmission Date: 20230113
  Serious: Yes (Other)
  Sender: FDA-Public Use
  Company Number: US-BIOGEN-2022BI01148976

PATIENT
  Sex: Male

DRUGS (17)
  1. TYSABRI [Suspect]
     Active Substance: NATALIZUMAB
     Indication: Multiple sclerosis
     Route: 050
     Dates: start: 20210428
  2. TYSABRI [Suspect]
     Active Substance: NATALIZUMAB
     Route: 050
  3. GABAPENTIN [Concomitant]
     Active Substance: GABAPENTIN
     Indication: Product used for unknown indication
     Route: 050
  4. GAS-X [Concomitant]
     Active Substance: DIMETHICONE
     Indication: Product used for unknown indication
     Route: 050
  5. GLIMEPIRIDE [Concomitant]
     Active Substance: GLIMEPIRIDE
     Indication: Product used for unknown indication
     Route: 050
  6. METFORMIN [Concomitant]
     Active Substance: METFORMIN HYDROCHLORIDE
     Indication: Product used for unknown indication
     Route: 050
  7. ACETAMINOPHEN [Concomitant]
     Active Substance: ACETAMINOPHEN
     Indication: Product used for unknown indication
     Dosage: EVERY 6 HOURS AS NEEDED
     Route: 050
  8. ASPIRIN [Concomitant]
     Active Substance: ASPIRIN
     Indication: Product used for unknown indication
     Route: 050
  9. CALCIUM CITRATE + VITAMIN D [Concomitant]
     Indication: Product used for unknown indication
     Dosage: 315 MILLIGRAMS / 250 INTERNATIONAL UNITS
     Route: 050
  10. CELEBREX [Concomitant]
     Active Substance: CELECOXIB
     Indication: Product used for unknown indication
     Route: 050
  11. DOCUSATE SODIUM\SENNA LEAF [Concomitant]
     Active Substance: DOCUSATE SODIUM\SENNA LEAF
     Indication: Product used for unknown indication
     Dosage: 50 MILLIGRAMS / 8.6 MILLIGRAMS AS NEEDED
     Route: 050
  12. DOXYCYLINE MONOHYDRATE [Concomitant]
     Indication: Product used for unknown indication
     Route: 050
  13. ENTEREG [Concomitant]
     Active Substance: ALVIMOPAN
     Indication: Product used for unknown indication
     Route: 050
  14. MIRALAX [Concomitant]
     Active Substance: POLYETHYLENE GLYCOL 3350
     Indication: Product used for unknown indication
     Route: 050
  15. NARCAN [Concomitant]
     Active Substance: NALOXONE HYDROCHLORIDE
     Indication: Product used for unknown indication
     Dosage: 4 MILLIGRAMS / 0.1ML
     Route: 050
  16. VITAMIN D3 [Concomitant]
     Active Substance: CHOLECALCIFEROL
     Indication: Product used for unknown indication
     Dosage: 50 MICROGRAMS = 2000 INTERNATIONAL UNITS.
     Route: 050
  17. OXYCODONE [Concomitant]
     Active Substance: OXYCODONE
     Indication: Pain
     Dosage: 1-2 TIMES A DAY
     Route: 050

REACTIONS (6)
  - Cervical spinal stenosis [Unknown]
  - Kyphosis [Unknown]
  - Intervertebral disc protrusion [Unknown]
  - Myelomalacia [Unknown]
  - Spinal osteoarthritis [Unknown]
  - Myelopathy [Unknown]
